FAERS Safety Report 21082373 (Version 1)
Quarter: 2022Q3

REPORT INFORMATION
  Report Type: Spontaneous
  Country: HU (occurrence: HU)
  Receive Date: 20220714
  Receipt Date: 20220714
  Transmission Date: 20221026
  Serious: Yes (Hospitalization, Other)
  Sender: FDA-Public Use
  Company Number: HU-002147023-NVSC2022HU135202

PATIENT
  Age: 60 Year
  Sex: Female

DRUGS (18)
  1. CIPROFLOXACIN [Suspect]
     Active Substance: CIPROFLOXACIN
     Indication: Bacteriuria
     Dosage: 500 MG, BID (FOR 7 DAYS), UNIT DOSE: 1000 MG, FREQUENCY TIME-1 DAY, THERAPY START DATE AND END DATE:
  2. PREGABALIN [Suspect]
     Active Substance: PREGABALIN
     Indication: Product used for unknown indication
     Dosage: 75 MG, BID (FOR ONE WEEK),  UNIT DOSE: 150 MG, FREQUENCY TIME-1 DAY, THERAPY START DATE AND END DATE
  3. PANTOPRAZOLE [Suspect]
     Active Substance: PANTOPRAZOLE
     Indication: Product used for unknown indication
     Dosage: 40 MG, THERAPY START DATE AND END DATE: ASKU
  4. LETROZOLE [Suspect]
     Active Substance: LETROZOLE
     Indication: Neoplasm malignant
     Dosage: DURATION 1853 DAYS
     Dates: start: 20150108, end: 20200203
  5. FENTANYL [Suspect]
     Active Substance: FENTANYL
     Indication: Product used for unknown indication
     Dosage: THERAPY START DATE AND END DATE: ASKU
  6. VOLTAREN [Suspect]
     Active Substance: DICLOFENAC SODIUM
     Indication: Pain
     Dosage: 75 MG,  THERAPY END DATE: ASKU
     Dates: start: 20211230
  7. TEGRETOL XR [Suspect]
     Active Substance: CARBAMAZEPINE
     Indication: Pain
     Dosage: 200 MG, QD (FOR 1 WEEK), DURATION 5 DAYS
     Dates: start: 20211230, end: 20220103
  8. TRAMADOL [Suspect]
     Active Substance: TRAMADOL
     Indication: Analgesic therapy
     Dosage: 50 MG, PRN,  THERAPY START DATE AND END DATE: ASKU
  9. CATAFLAM [Suspect]
     Active Substance: DICLOFENAC POTASSIUM
     Indication: Pain
     Dosage: 50 MG, THERAPY START DATE AND END DATE: ASKU
  10. FAMOTIDINE [Concomitant]
     Active Substance: FAMOTIDINE
     Indication: Product used for unknown indication
     Dosage: 40 MG
  11. ENOXAPARIN SODIUM [Concomitant]
     Active Substance: ENOXAPARIN SODIUM
     Indication: Product used for unknown indication
     Dosage: 6000 IU
  12. FENTANYL [Concomitant]
     Active Substance: FENTANYL
     Indication: Product used for unknown indication
     Dosage: 100 (PATCHES)
  13. XGEVA [Concomitant]
     Active Substance: DENOSUMAB
     Indication: Product used for unknown indication
     Dosage: UNK, QMO
     Dates: start: 20211230
  14. LEVOTHYROXINE SODIUM [Concomitant]
     Active Substance: LEVOTHYROXINE SODIUM
     Indication: Product used for unknown indication
     Dosage: UNK
  15. VITAMIN D3 [Concomitant]
     Active Substance: CHOLECALCIFEROL
     Indication: Product used for unknown indication
     Dosage: 3000 IU
  16. CONTROLOC [Concomitant]
     Active Substance: PANTOPRAZOLE SODIUM
     Indication: Product used for unknown indication
     Dosage: 40 MILLIGRAM DAILY; 40 MG, QD
  17. CHLOROPYRAMINE HYDROCHLORIDE [Concomitant]
     Active Substance: CHLOROPYRAMINE HYDROCHLORIDE
     Indication: Product used for unknown indication
     Dosage: UNK, QD
  18. CALCIUM [Concomitant]
     Active Substance: CALCIUM
     Indication: Product used for unknown indication
     Dosage: 500 MG

REACTIONS (14)
  - Bone pain [Not Recovered/Not Resolved]
  - Metastases to bone [Unknown]
  - Pulmonary congestion [Unknown]
  - Pleural neoplasm [Unknown]
  - Pathological fracture [Unknown]
  - Bell^s palsy [Recovering/Resolving]
  - Metastases to lung [Unknown]
  - Product use in unapproved indication [Unknown]
  - Arthralgia [Not Recovered/Not Resolved]
  - Myalgia [Unknown]
  - Pyrexia [Unknown]
  - Vaccination site reaction [Unknown]
  - Breast disorder [Unknown]
  - COVID-19 [Unknown]

NARRATIVE: CASE EVENT DATE: 20200220
